FAERS Safety Report 13381758 (Version 1)
Quarter: 2017Q1

REPORT INFORMATION
  Report Type: Spontaneous
  Country: US (occurrence: US)
  Receive Date: 20170329
  Receipt Date: 20170329
  Transmission Date: 20170429
  Serious: Yes (Hospitalization)
  Sender: FDA-Public Use
  Company Number: None

PATIENT
  Age: 48 Year
  Sex: Female
  Weight: 133.2 kg

DRUGS (1)
  1. AMITIZA [Suspect]
     Active Substance: LUBIPROSTONE
     Indication: IRRITABLE BOWEL SYNDROME
     Route: 048
     Dates: start: 20170301, end: 20170324

REACTIONS (9)
  - Swelling [None]
  - Peripheral swelling [None]
  - Local swelling [None]
  - Influenza like illness [None]
  - Pain [None]
  - Drug ineffective [None]
  - Chest pain [None]
  - Dyspnoea [None]
  - Bedridden [None]

NARRATIVE: CASE EVENT DATE: 20170324
